FAERS Safety Report 5195639-2 (Version None)
Quarter: 2006Q4

REPORT INFORMATION
  Report Type: 
  Country: None (occurrence: None)
  Receive Date: 20061222
  Receipt Date: 20061222
  Transmission Date: 20070319
  Serious: Yes (Hospitalization)
  Sender: FDA-Public Use
  Company Number: None

PATIENT
  Age: 17 Year
  Sex: Female
  Weight: 49.8957 kg

DRUGS (2)
  1. CIPRO [Suspect]
     Indication: URINARY TRACT INFECTION
     Dates: start: 20010201, end: 20010204
  2. AVELOX [Suspect]
     Indication: RESPIRATORY TRACT INFECTION
     Dates: start: 20010201, end: 20010204

REACTIONS (6)
  - ABASIA [None]
  - CONVULSION [None]
  - DEPERSONALISATION [None]
  - EXTRASYSTOLES [None]
  - FALL [None]
  - SPEECH DISORDER [None]
